FAERS Safety Report 8816702 (Version 1)
Quarter: 2012Q4

REPORT INFORMATION
  Report Type: Spontaneous
  Country: US (occurrence: None)
  Receive Date: 20120928
  Receipt Date: 20120928
  Transmission Date: 20130627
  Serious: Yes (Other)
  Sender: FDA-Public Use
  Company Number: 20120600

PATIENT
  Age: 52 Year

DRUGS (1)
  1. CYCLOSPORINE [Suspect]
     Indication: TRANSPLANT

REACTIONS (3)
  - Posterior reversible encephalopathy syndrome [None]
  - Toxicity to various agents [None]
  - Convulsion [None]
